FAERS Safety Report 5140603-2 (Version None)
Quarter: 2006Q4

REPORT INFORMATION
  Report Type: 
  Country: None (occurrence: None)
  Receive Date: 20061024
  Receipt Date: 20061011
  Transmission Date: 20070319
  Serious: Yes (Death, Life-Threatening)
  Sender: FDA-Public Use
  Company Number: JP200610001961

PATIENT
  Age: 12 Month
  Sex: Male

DRUGS (1)
  1. KEFRAL(CEFACLOR UNKNOWN FORMULATION) UNKNOWN [Suspect]
     Dates: start: 20041001

REACTIONS (4)
  - HEPATITIS FULMINANT [None]
  - LIVER TRANSPLANT [None]
  - MULTI-ORGAN FAILURE [None]
  - POST PROCEDURAL COMPLICATION [None]
